FAERS Safety Report 4608513-4 (Version None)
Quarter: 2005Q1

REPORT INFORMATION
  Report Type: 
  Country: None (occurrence: None)
  Receive Date: 20050310
  Receipt Date: 20050310
  Transmission Date: 20050727
  Serious: Yes (Other)
  Sender: FDA-Public Use
  Company Number: None

PATIENT
  Age: 15 Year
  Sex: Male
  Weight: 58.0604 kg

DRUGS (1)
  1. CHILDREN'S BENADRYL  DIPHENHYDR 12.5 MG   PSEUDOEP 30 MG [Suspect]

REACTIONS (2)
  - MEDICATION ERROR [None]
  - PSYCHOMOTOR HYPERACTIVITY [None]
